FAERS Safety Report 16270159 (Version 1)
Quarter: 2019Q2

REPORT INFORMATION
  Report Type: Spontaneous
  Country: AT (occurrence: AT)
  Receive Date: 20190503
  Receipt Date: 20190503
  Transmission Date: 20190711
  Serious: Yes (Other)
  Sender: FDA-Public Use
  Company Number: AT-CELGENEUS-AUT-20190411225

PATIENT
  Age: 77 Year
  Sex: Male

DRUGS (7)
  1. DEXAMETHASONE. [Concomitant]
     Active Substance: DEXAMETHASONE
     Dosage: VEL/DEXA
     Route: 065
     Dates: start: 201310, end: 201311
  2. VELCADE [Concomitant]
     Active Substance: BORTEZOMIB
     Indication: PLASMA CELL MYELOMA
     Route: 065
     Dates: start: 201304, end: 201307
  3. POMALIDOMIDE [Suspect]
     Active Substance: POMALIDOMIDE
     Indication: PLASMA CELL MYELOMA
     Route: 048
     Dates: start: 201511, end: 201607
  4. DEXAMETHASONE. [Concomitant]
     Active Substance: DEXAMETHASONE
     Indication: PLASMA CELL MYELOMA
     Dosage: VEL/DEXA
     Route: 065
     Dates: start: 201304, end: 201307
  5. DEXAMETHASONE. [Concomitant]
     Active Substance: DEXAMETHASONE
     Dosage: BENDA/POM/DEXA
     Route: 065
     Dates: start: 201511, end: 201607
  6. BENDAMUSTINE [Concomitant]
     Active Substance: BENDAMUSTINE
     Indication: PLASMA CELL MYELOMA
     Dosage: BENDA/REV/DEXA
     Route: 065
     Dates: start: 201310, end: 201311
  7. BENDAMUSTINE [Concomitant]
     Active Substance: BENDAMUSTINE
     Dosage: BENDA/POM/DEXA
     Route: 065
     Dates: start: 201511, end: 201607

REACTIONS (2)
  - General physical health deterioration [Unknown]
  - Circulatory collapse [Unknown]

NARRATIVE: CASE EVENT DATE: 201602
